FAERS Safety Report 10173548 (Version 1)
Quarter: 2014Q2

REPORT INFORMATION
  Report Type: Spontaneous
  Country: DK (occurrence: DK)
  Receive Date: 20140515
  Receipt Date: 20140515
  Transmission Date: 20141212
  Serious: Yes (Disabling, Other)
  Sender: FDA-Public Use
  Company Number: DK-ASTRAZENECA-2014SE31250

PATIENT
  Sex: Female

DRUGS (2)
  1. SEROQUEL [Suspect]
     Indication: CIRCADIAN RHYTHM SLEEP DISORDER
     Dosage: 25-50 MG A DAY
     Route: 048
  2. UNSPECIFIED PAIN MEDICATION [Concomitant]

REACTIONS (3)
  - Transient ischaemic attack [Unknown]
  - Hemiparesis [Unknown]
  - Off label use [Unknown]
